FAERS Safety Report 6274664-4 (Version None)
Quarter: 2009Q3

REPORT INFORMATION
  Report Type: 
  Country: None (occurrence: None)
  Receive Date: 20090717
  Receipt Date: 20090702
  Transmission Date: 20100115
  Serious: Yes (Death)
  Sender: FDA-Public Use
  Company Number: 2009008452

PATIENT

DRUGS (1)
  1. TRISENOX [Suspect]
     Indication: NEUROBLASTOMA
     Dosage: INTRAVENOUS DRIP

REACTIONS (2)
  - MALIGNANT NEOPLASM PROGRESSION [None]
  - NEUROBLASTOMA [None]
